FAERS Safety Report 17470771 (Version 3)
Quarter: 2020Q3

REPORT INFORMATION
  Report Type: Other
  Country: GB (occurrence: GB)
  Receive Date: 20200228
  Receipt Date: 20200406
  Transmission Date: 20201105
  Serious: Yes (Other)
  Sender: FDA-Public Use
  Company Number: GB-CELLTRION INC.-2020GB019613

PATIENT

DRUGS (6)
  1. BENDAMUSTINE [Suspect]
     Active Substance: BENDAMUSTINE
     Indication: DIFFUSE LARGE B-CELL LYMPHOMA REFRACTORY
     Dosage: 70 MG/M2, EVERY 3 WEEKS
     Route: 042
     Dates: start: 20191216
  2. COTRIMOXAZOLE [Concomitant]
     Active Substance: SULFAMETHOXAZOLE\TRIMETHOPRIM
     Dosage: MON/WED/FRI ONCE A DAY
     Route: 048
     Dates: start: 20191213
  3. POLATUZUMAB VEDOTIN. [Suspect]
     Active Substance: POLATUZUMAB VEDOTIN
     Indication: DIFFUSE LARGE B-CELL LYMPHOMA REFRACTORY
     Dosage: 1.8 MG/KG, EVERY 3 WEEKS
     Route: 042
     Dates: start: 20191216
  4. RITUXIMAB (UNKNOWN) [Suspect]
     Active Substance: RITUXIMAB
     Indication: DIFFUSE LARGE B-CELL LYMPHOMA REFRACTORY
     Dosage: 375 MG/M2, EVERY 3 WEEKS
     Route: 041
     Dates: start: 20191213
  5. ACICLOVIR [Concomitant]
     Active Substance: ACYCLOVIR
     Dosage: 200 MG, 0.5 DAY
     Route: 048
     Dates: start: 20191213
  6. ACICLOVIR [Concomitant]
     Active Substance: ACYCLOVIR
     Dosage: 400 MG, QD
     Route: 048
     Dates: start: 20191213

REACTIONS (3)
  - Spinal stenosis [Recovering/Resolving]
  - Influenza [Recovered/Resolved]
  - Thecal sac compression [Unknown]

NARRATIVE: CASE EVENT DATE: 20191227
